FAERS Safety Report 18695885 (Version 1)
Quarter: 2021Q1

REPORT INFORMATION
  Report Type: Spontaneous
  Country: IR (occurrence: IR)
  Receive Date: 20210104
  Receipt Date: 20210104
  Transmission Date: 20210419
  Serious: Yes (Hospitalization, Other)
  Sender: FDA-Public Use
  Company Number: IR-AMNEAL PHARMACEUTICALS-2020-AMRX-04037

PATIENT
  Age: 19 Year
  Sex: Male

DRUGS (2)
  1. PHENYTOIN SODIUM. [Suspect]
     Active Substance: PHENYTOIN SODIUM
     Indication: ECHINOCOCCIASIS
     Dosage: UNK
     Route: 065
  2. ALBENZA [Suspect]
     Active Substance: ALBENDAZOLE
     Indication: ECHINOCOCCIASIS
     Dosage: UNK
     Route: 048

REACTIONS (9)
  - Drug interaction [Unknown]
  - Disease recurrence [Recovered/Resolved]
  - Headache [Recovered/Resolved]
  - Echinococciasis [Recovered/Resolved]
  - Leukocytosis [Recovered/Resolved]
  - Generalised tonic-clonic seizure [Recovered/Resolved]
  - Nervous system disorder [Unknown]
  - Cyst [Recovered/Resolved]
  - Liver disorder [Unknown]
